FAERS Safety Report 23918239 (Version 1)
Quarter: 2024Q2

REPORT INFORMATION
  Report Type: Spontaneous
  Country: AU (occurrence: AU)
  Receive Date: 20240530
  Receipt Date: 20240530
  Transmission Date: 20240715
  Serious: Yes (Other)
  Sender: FDA-Public Use
  Company Number: AU-TEVA-VS-3201280

PATIENT
  Sex: Female

DRUGS (6)
  1. FENTANYL [Suspect]
     Active Substance: FENTANYL\FENTANYL CITRATE
     Route: 065
  2. DEXAMETHASONE [Concomitant]
     Active Substance: DEXAMETHASONE
  3. MIDAZOLAM [Concomitant]
     Active Substance: MIDAZOLAM
  4. ONDANSETRON [Concomitant]
     Active Substance: ONDANSETRON
  5. PROPOFOL [Suspect]
     Active Substance: PROPOFOL
     Route: 065
  6. VECURONIUM [Suspect]
     Active Substance: VECURONIUM BROMIDE
     Route: 065

REACTIONS (4)
  - Oxygen saturation decreased [Unknown]
  - Cough [Unknown]
  - Bronchospasm [Unknown]
  - Wheezing [Unknown]
